FAERS Safety Report 9287828 (Version 2)
Quarter: 2013Q2

REPORT INFORMATION
  Report Type: Spontaneous
  Country: US (occurrence: US)
  Receive Date: 20130514
  Receipt Date: 20130607
  Transmission Date: 20140414
  Serious: No
  Sender: FDA-Public Use
  Company Number: US-PFIZER INC-2013144757

PATIENT
  Age: 55 Year
  Sex: Female

DRUGS (2)
  1. XALKORI [Suspect]
     Dosage: 250 MG, 2X/DAY
     Route: 048
  2. ENOXAPARIN [Suspect]
     Dosage: 80MG/0.8ML

REACTIONS (2)
  - Oedema peripheral [Unknown]
  - Localised oedema [Unknown]
